FAERS Safety Report 15007147 (Version 1)
Quarter: 2018Q2

REPORT INFORMATION
  Report Type: Spontaneous
  Country: US (occurrence: US)
  Receive Date: 20180521
  Receipt Date: 20180521
  Transmission Date: 20180711
  Serious: Yes (Hospitalization)
  Sender: FDA-Public Use
  Company Number: None

PATIENT
  Age: 73 Year
  Sex: Male

DRUGS (1)
  1. IBUPROFEN. [Suspect]
     Active Substance: IBUPROFEN
     Indication: PAIN
     Route: 048
     Dates: start: 20180406, end: 20180416

REACTIONS (9)
  - Duodenal ulcer [None]
  - Upper gastrointestinal haemorrhage [None]
  - Fatigue [None]
  - Dyspnoea exertional [None]
  - Haemoglobin decreased [None]
  - Back pain [None]
  - Gastric haemorrhage [None]
  - Dyspnoea [None]
  - Melaena [None]

NARRATIVE: CASE EVENT DATE: 20180501
